FAERS Safety Report 13080892 (Version 5)
Quarter: 2017Q1

REPORT INFORMATION
  Report Type: Report from Study
  Country: GB (occurrence: GB)
  Receive Date: 20170103
  Receipt Date: 20170216
  Transmission Date: 20170428
  Serious: Yes (Other)
  Sender: FDA-Public Use
  Company Number: GB-JNJFOC-20161207381

PATIENT
  Sex: Female

DRUGS (1)
  1. SIMPONI [Suspect]
     Active Substance: GOLIMUMAB
     Indication: PSORIATIC ARTHROPATHY
     Route: 058
     Dates: start: 20161125

REACTIONS (8)
  - Nausea [Recovering/Resolving]
  - Contusion [Unknown]
  - Costochondritis [Unknown]
  - Dizziness [Recovering/Resolving]
  - Malaise [Unknown]
  - Heart rate increased [Recovered/Resolved]
  - Lower respiratory tract infection [Unknown]
  - Palpitations [Unknown]

NARRATIVE: CASE EVENT DATE: 2016
